FAERS Safety Report 15907868 (Version 1)
Quarter: 2019Q1

REPORT INFORMATION
  Report Type: Spontaneous
  Country: US (occurrence: US)
  Receive Date: 20190204
  Receipt Date: 20190204
  Transmission Date: 20190417
  Serious: No
  Sender: FDA-Public Use
  Company Number: US-VALIDUS PHARMACEUTICALS LLC-US-2018VAL000166

PATIENT
  Sex: Female

DRUGS (1)
  1. EQUETRO [Suspect]
     Active Substance: CARBAMAZEPINE
     Indication: BIPOLAR DISORDER
     Dosage: UNK

REACTIONS (4)
  - Adverse drug reaction [Recovered/Resolved]
  - Product administered to patient of inappropriate age [Unknown]
  - Drug intolerance [Unknown]
  - Agitation [Recovered/Resolved]
